FAERS Safety Report 7715238-5 (Version None)
Quarter: 2011Q3

REPORT INFORMATION
  Report Type: 
  Country: None (occurrence: None)
  Receive Date: 20110829
  Receipt Date: 20110824
  Transmission Date: 20111222
  Serious: Yes (Death)
  Sender: FDA-Public Use
  Company Number: PHEH2011US02355

PATIENT
  Age: 75 Year
  Sex: Female

DRUGS (8)
  1. VITAMIN E [Concomitant]
     Dosage: UNK UKN, UNK
     Route: 065
  2. HYDROCODONE BITARTRATE [Concomitant]
     Dosage: UNK UKN, UNK
     Route: 065
  3. ASCORBIC ACID [Concomitant]
     Dosage: UNK UKN, UNK
     Route: 065
  4. ZOMETA [Suspect]
     Dosage: UNK UKN, UNK
  5. VICODIN [Concomitant]
     Dosage: UNK UKN, UNK
     Route: 065
  6. CALCIUM CARBONATE [Concomitant]
     Dosage: UNK UKN, UNK
     Route: 065
  7. VITAMIN B GROUP [Concomitant]
     Dosage: UNK UKN, UNK
     Route: 065
  8. MULTI-VITAMINS [Concomitant]
     Dosage: UNK UKN, UNK
     Route: 065

REACTIONS (1)
  - DEATH [None]
